FAERS Safety Report 7231871-1 (Version None)
Quarter: 2011Q1

REPORT INFORMATION
  Report Type: 
  Country: None (occurrence: None)
  Receive Date: 20110118
  Receipt Date: 20110114
  Transmission Date: 20110831
  Serious: Yes (Death, Other)
  Sender: FDA-Public Use
  Company Number: IT-BAXTER-2011BH001188

PATIENT
  Age: 40 Year
  Sex: Female

DRUGS (6)
  1. THALIDOMIDE [Suspect]
     Indication: MONOCLONAL GAMMOPATHY
     Route: 065
  2. IGIV, UNSPECIFIED PRODUCT [Suspect]
     Indication: MONOCLONAL GAMMOPATHY
     Route: 042
  3. CYCLOPHOSPHAMIDE [Suspect]
     Indication: MONOCLONAL GAMMOPATHY
     Route: 065
  4. FILGRASTIM [Suspect]
     Indication: MYXOEDEMA
     Route: 042
  5. BORTEZOMIB [Suspect]
     Indication: MONOCLONAL GAMMOPATHY
     Route: 042
  6. DEXAMETHASONE [Suspect]
     Indication: MONOCLONAL GAMMOPATHY
     Route: 042

REACTIONS (9)
  - CHEST PAIN [None]
  - ASTHENIA [None]
  - CARDIOMYOPATHY [None]
  - CARDIAC FAILURE [None]
  - MITRAL VALVE INCOMPETENCE [None]
  - DYSPNOEA [None]
  - RENAL FAILURE [None]
  - OEDEMA PERIPHERAL [None]
  - TRICUSPID VALVE INCOMPETENCE [None]
